FAERS Safety Report 16410111 (Version 3)
Quarter: 2020Q4

REPORT INFORMATION
  Report Type: Report from Study
  Country: DE (occurrence: DE)
  Receive Date: 20190610
  Receipt Date: 20201207
  Transmission Date: 20210113
  Serious: Yes (Hospitalization, Other)
  Sender: FDA-Public Use
  Company Number: DE-MYLANLABS-2019M1053477

PATIENT
  Age: 3 Decade
  Sex: Male

DRUGS (4)
  1. SIMPONI [Suspect]
     Active Substance: GOLIMUMAB
     Dosage: 50 MILLIGRAM, 4 WEEK
     Route: 058
     Dates: start: 20171201
  2. CELECOXIB. [Suspect]
     Active Substance: CELECOXIB
     Indication: AXIAL SPONDYLOARTHRITIS
     Dosage: DOSAGE FORM: UNSPECIFIED
     Route: 065
     Dates: start: 20180405
  3. SIMPONI [Suspect]
     Active Substance: GOLIMUMAB
     Indication: AXIAL SPONDYLOARTHRITIS
     Dosage: 50 MILLIGRAM, 4 WEEK
     Route: 058
     Dates: start: 20171201
  4. ETORICOXIB. [Suspect]
     Active Substance: ETORICOXIB
     Indication: AXIAL SPONDYLOARTHRITIS
     Dosage: DOSAGE FORM: UNSPECIFIED
     Route: 065
     Dates: start: 20171013, end: 20180405

REACTIONS (4)
  - Viral upper respiratory tract infection [Unknown]
  - Appendicitis [Recovered/Resolved]
  - Nasopharyngitis [Unknown]
  - Pregnancy of partner [Recovered/Resolved]

NARRATIVE: CASE EVENT DATE: 20180201
